FAERS Safety Report 6880357-2 (Version None)
Quarter: 2010Q3

REPORT INFORMATION
  Report Type: 
  Country: None (occurrence: None)
  Receive Date: 20100728
  Receipt Date: 20100719
  Transmission Date: 20110219
  Serious: Yes (Death)
  Sender: FDA-Public Use
  Company Number: US-WATSON-2010-09555

PATIENT
  Sex: Male

DRUGS (1)
  1. FENTANYL-50 [Suspect]
     Indication: PAIN
     Dosage: PRESCRIBED TO BE CHANGED EVERY 72 HOURS
     Route: 062
     Dates: start: 20080714

REACTIONS (6)
  - CYANOSIS [None]
  - DRUG ADMINISTRATION ERROR [None]
  - DRUG PRESCRIBING ERROR [None]
  - FEELING COLD [None]
  - OVERDOSE [None]
  - UNRESPONSIVE TO STIMULI [None]
